FAERS Safety Report 19474727 (Version 4)
Quarter: 2021Q4

REPORT INFORMATION
  Report Type: Report from Study
  Country: US (occurrence: US)
  Receive Date: 20210629
  Receipt Date: 20211014
  Transmission Date: 20220303
  Serious: No
  Sender: FDA-Public Use
  Company Number: NVSC2021US139596

PATIENT
  Sex: Male

DRUGS (1)
  1. COSENTYX [Suspect]
     Active Substance: SECUKINUMAB
     Indication: Psoriasis
     Dosage: 300 MG, UNKNOWN
     Route: 003

REACTIONS (5)
  - Dysgeusia [Unknown]
  - Headache [Recovered/Resolved]
  - Sensitive skin [Recovering/Resolving]
  - Pruritus [Recovering/Resolving]
  - Incorrect route of product administration [Unknown]
